FAERS Safety Report 6639130-2 (Version None)
Quarter: 2010Q1

REPORT INFORMATION
  Report Type: 
  Country: None (occurrence: None)
  Receive Date: 20100312
  Receipt Date: 20100305
  Transmission Date: 20100710
  Serious: Yes (Death)
  Sender: FDA-Public Use
  Company Number: 2010SP014032

PATIENT
  Age: 47 Year
  Sex: Male

DRUGS (2)
  1. REFLEX (MIRTAZAPINE /01293201/) [Suspect]
     Indication: DRUG USE FOR UNKNOWN INDICATION
  2. ZOLPIDEM TARTRATE (CON.) [Concomitant]

REACTIONS (1)
  - COMPLETED SUICIDE [None]
